FAERS Safety Report 15131310 (Version 1)
Quarter: 2018Q3

REPORT INFORMATION
  Report Type: Spontaneous
  Country: JP (occurrence: JP)
  Receive Date: 20180711
  Receipt Date: 20180711
  Transmission Date: 20181010
  Serious: Yes (Hospitalization)
  Sender: FDA-Public Use
  Company Number: JP-PFIZER INC-2018269225

PATIENT
  Age: 76 Year
  Sex: Female

DRUGS (2)
  1. SELARA 50MG [Suspect]
     Active Substance: EPLERENONE
     Dosage: 25 MG, DAILY
     Route: 048
     Dates: start: 20180515, end: 20180524
  2. SELARA 50MG [Suspect]
     Active Substance: EPLERENONE
     Dosage: 50 MG, DAILY
     Route: 048
     Dates: start: 20180525, end: 20180614

REACTIONS (3)
  - Hyperkalaemia [Recovered/Resolved]
  - Heart rate decreased [Recovered/Resolved]
  - Arrhythmia [Recovered/Resolved]

NARRATIVE: CASE EVENT DATE: 20180614
